FAERS Safety Report 6922812-2 (Version None)
Quarter: 2010Q3

REPORT INFORMATION
  Report Type: 
  Country: None (occurrence: None)
  Receive Date: 20100813
  Receipt Date: 20100803
  Transmission Date: 20110219
  Serious: Yes (Other)
  Sender: FDA-Public Use
  Company Number: JP-PFIZER INC-2010084806

PATIENT
  Sex: Female

DRUGS (1)
  1. CHAMPIX [Suspect]
     Dosage: UNK
     Route: 048

REACTIONS (5)
  - ABNORMAL DREAMS [None]
  - HEADACHE [None]
  - INTENTIONAL SELF-INJURY [None]
  - SOMNOLENCE [None]
  - TREMOR [None]
